FAERS Safety Report 9922958 (Version 1)
Quarter: 2014Q1

REPORT INFORMATION
  Report Type: Spontaneous
  Country: ES (occurrence: ES)
  Receive Date: 20140225
  Receipt Date: 20140225
  Transmission Date: 20141002
  Serious: Yes (Hospitalization)
  Sender: FDA-Public Use
  Company Number: ES-B.I. PHARMACEUTICALS,INC./RIDGEFIELD-2014-BI-07288ES

PATIENT
  Age: 67 Year
  Sex: Male

DRUGS (4)
  1. TRAJENTA [Suspect]
     Indication: TYPE 2 DIABETES MELLITUS
     Dosage: 5 MG
     Route: 048
     Dates: start: 20131217, end: 20140121
  2. GLIMEPIRIDA [Concomitant]
     Indication: TYPE 2 DIABETES MELLITUS
     Dosage: 4 MG
     Route: 048
  3. SIMVASTATINA [Concomitant]
     Indication: HYPERLIPIDAEMIA
     Dosage: 20 MG
     Route: 048
     Dates: end: 20140121
  4. OMEPRAZOL [Concomitant]
     Indication: PRODUCT USED FOR UNKNOWN INDICATION
     Dosage: 20 MG
     Route: 048
     Dates: end: 20140121

REACTIONS (1)
  - Pancreatitis acute [Recovered/Resolved]
